FAERS Safety Report 19769247 (Version 2)
Quarter: 2022Q2

REPORT INFORMATION
  Report Type: Report from Study
  Country: US (occurrence: US)
  Receive Date: 20210831
  Receipt Date: 20220511
  Transmission Date: 20220721
  Serious: No
  Sender: FDA-Public Use
  Company Number: US-NOVARTISTESTPH-NVSC2021US196521

PATIENT
  Age: 27 Year
  Sex: Female

DRUGS (2)
  1. GILENYA [Suspect]
     Active Substance: FINGOLIMOD HYDROCHLORIDE
     Indication: Product used for unknown indication
     Dosage: 0.5 MG, QD
     Route: 048
     Dates: start: 20210825, end: 202112
  2. GILENYA [Suspect]
     Active Substance: FINGOLIMOD HYDROCHLORIDE
     Dosage: UNK
     Route: 065
     Dates: start: 20220503

REACTIONS (4)
  - Somnolence [Recovered/Resolved]
  - SARS-CoV-2 test positive [Unknown]
  - Drug monitoring procedure not performed [Unknown]
  - Nausea [Recovered/Resolved]

NARRATIVE: CASE EVENT DATE: 20210825
